FAERS Safety Report 4821760-1 (Version None)
Quarter: 2005Q4

REPORT INFORMATION
  Report Type: 
  Country: None (occurrence: None)
  Receive Date: 20051103
  Receipt Date: 20051019
  Transmission Date: 20060501
  Serious: Yes (Death)
  Sender: FDA-Public Use
  Company Number: 2005S1010531

PATIENT
  Sex: Female

DRUGS (9)
  1. CLOZAPINE [Suspect]
     Dosage: SEE IMAGE
     Route: 048
     Dates: start: 20030115, end: 20050901
  2. CLOZAPINE [Suspect]
     Dosage: SEE IMAGE
     Route: 048
     Dates: start: 20030115, end: 20050901
  3. SERTRALINE HYDROCHLORIDE [Concomitant]
  4. ZONISAMIDE [Concomitant]
  5. ALPRAZOLAM [Concomitant]
  6. LISINOPRIL [Concomitant]
  7. LEVOTHYROXINE [Concomitant]
  8. DESMOPRESSIN [Concomitant]
  9. ATORVASTATIN CALCIUM [Concomitant]

REACTIONS (1)
  - NO ADVERSE DRUG EFFECT [None]
